FAERS Safety Report 7832376-7 (Version None)
Quarter: 2011Q4

REPORT INFORMATION
  Report Type: 
  Country: None (occurrence: None)
  Receive Date: 20111022
  Receipt Date: 20111018
  Transmission Date: 20120403
  Serious: Yes (Hospitalization, Other)
  Sender: FDA-Public Use
  Company Number: DE-BAYER-2011-064077

PATIENT
  Age: 59 Year
  Sex: Male

DRUGS (7)
  1. SORAFENIB (RAF KINASE INHIBITOR) [Suspect]
     Indication: METASTATIC RENAL CELL CARCINOMA
     Dosage: DOSE: 2X400MG
     Dates: start: 20110119, end: 20110711
  2. HYDROMORPHONE HCL [Concomitant]
     Dosage: 8 MG, UNK
     Dates: start: 20110721
  3. ETORICOXIB [Concomitant]
     Dosage: 90 MG, UNK
     Dates: start: 20110721
  4. SUTENT [Suspect]
     Indication: METASTATIC RENAL CELL CARCINOMA
     Dosage: DOSE: 50MG
     Dates: start: 20110802, end: 20110829
  5. BISOPROLOL [Concomitant]
     Dosage: 25 MG, UNK
     Dates: start: 20110711
  6. HYDROMORPHONE HCL [Concomitant]
     Dosage: 4 MG, UNK
     Dates: start: 20110722
  7. PANTOPRAZOLE [Concomitant]
     Dosage: 40 MG, UNK
     Dates: start: 20110722

REACTIONS (7)
  - DECREASED APPETITE [None]
  - PAIN [None]
  - ANAEMIA [None]
  - CONSTIPATION [None]
  - GENERAL PHYSICAL HEALTH DETERIORATION [None]
  - DYSPNOEA [None]
  - PNEUMONIA [None]
